FAERS Safety Report 5026812-1 (Version None)
Quarter: 2006Q2

REPORT INFORMATION
  Report Type: 
  Country: None (occurrence: None)
  Receive Date: 20060615
  Receipt Date: 20060303
  Transmission Date: 20061013
  Serious: Yes (Other)
  Sender: FDA-Public Use
  Company Number: PHEH2006US02905

PATIENT
  Sex: Female

DRUGS (3)
  1. AREDIA [Suspect]
     Indication: METASTASES TO BONE
     Dosage: 90MG Q4WKS
     Dates: start: 20020428, end: 20050719
  2. XELODA [Concomitant]
     Indication: METASTATIC NEOPLASM
     Dosage: 2500/DAY 14 DAY Q21D
     Dates: start: 20040901
  3. ARIMIDEX [Concomitant]
     Indication: METASTATIC NEOPLASM
     Dosage: 1 MG, QD
     Dates: start: 20020401, end: 20040901

REACTIONS (4)
  - BONE DISORDER [None]
  - JAW OPERATION [None]
  - OSTEONECROSIS [None]
  - TOOTH EXTRACTION [None]
